FAERS Safety Report 24734709 (Version 1)
Quarter: 2024Q4

REPORT INFORMATION
  Report Type: Other
  Country: US (occurrence: US)
  Receive Date: 20241214
  Receipt Date: 20241214
  Transmission Date: 20250115
  Serious: Yes (Hospitalization, Other)
  Sender: OMNIVIUM PHARMACEUTICALS LLC
  Company Number: US-Omnivium Pharmaceuticals LLC-2167100

PATIENT
  Age: 35 Year
  Sex: Male

DRUGS (3)
  1. NUMBRINO [Suspect]
     Active Substance: COCAINE HYDROCHLORIDE
     Indication: Product used for unknown indication
  2. METHAMPHETAMINE HYDROCHLORIDE [Suspect]
     Active Substance: METHAMPHETAMINE HYDROCHLORIDE
  3. HALOPERIDOL [Suspect]
     Active Substance: HALOPERIDOL

REACTIONS (2)
  - Malignant catatonia [Recovered/Resolved]
  - Toxicity to various agents [Recovered/Resolved]
